FAERS Safety Report 18345993 (Version 1)
Quarter: 2020Q4

REPORT INFORMATION
  Report Type: Spontaneous
  Country: US (occurrence: US)
  Receive Date: 20201005
  Receipt Date: 20201005
  Transmission Date: 20210114
  Serious: Yes (Other)
  Sender: FDA-Public Use
  Company Number: US-COLLEGIUM PHARMACEUTICAL, INC.-US-2019COL001026

PATIENT
  Sex: Female

DRUGS (4)
  1. NUCYNTA ER [Suspect]
     Active Substance: TAPENTADOL HYDROCHLORIDE
     Indication: NERVE INJURY
     Dosage: 50 MG, UNK
  2. NUCYNTA ER [Suspect]
     Active Substance: TAPENTADOL HYDROCHLORIDE
     Dosage: 150 MG, UNK
  3. NUCYNTA [Suspect]
     Active Substance: TAPENTADOL HYDROCHLORIDE
     Indication: PRODUCT USED FOR UNKNOWN INDICATION
     Dosage: UNK
  4. NUCYNTA ER [Suspect]
     Active Substance: TAPENTADOL HYDROCHLORIDE
     Indication: NEURALGIA
     Dosage: 200 MG, EVERY 12 HOURS
     Route: 065

REACTIONS (17)
  - Loose tooth [Unknown]
  - Rhinorrhoea [Unknown]
  - Product dose omission issue [Unknown]
  - Nasopharyngitis [Unknown]
  - Gastrointestinal pain [Unknown]
  - Drug ineffective for unapproved indication [Unknown]
  - Illness [Unknown]
  - Rash pustular [Unknown]
  - Rash papular [Unknown]
  - Chills [Unknown]
  - Tremor [Unknown]
  - Lethargy [Unknown]
  - Burning sensation [Unknown]
  - Decreased appetite [Unknown]
  - Adverse drug reaction [Unknown]
  - Drug withdrawal syndrome [Unknown]
  - Hyperhidrosis [Unknown]
